FAERS Safety Report 10004730 (Version 1)
Quarter: 2014Q1

REPORT INFORMATION
  Report Type: Spontaneous
  Country: CA (occurrence: CA)
  Receive Date: 20140312
  Receipt Date: 20140312
  Transmission Date: 20141002
  Serious: Yes (Other)
  Sender: FDA-Public Use
  Company Number: CA-GLAXOSMITHKLINE-A1064389A

PATIENT
  Age: 61 Year
  Sex: Female
  Weight: 74.5 kg

DRUGS (1)
  1. ADVAIR [Suspect]
     Indication: PRODUCT USED FOR UNKNOWN INDICATION
     Dosage: 2PUFF PER DAY
     Route: 055

REACTIONS (5)
  - Pneumonia viral [Recovered/Resolved with Sequelae]
  - Cough [Recovered/Resolved with Sequelae]
  - Drug hypersensitivity [Recovered/Resolved with Sequelae]
  - Increased upper airway secretion [Recovered/Resolved with Sequelae]
  - Rash [Recovered/Resolved with Sequelae]
